FAERS Safety Report 24830585 (Version 5)
Quarter: 2025Q2

REPORT INFORMATION
  Report Type: Spontaneous
  Country: JP (occurrence: JP)
  Receive Date: 20250110
  Receipt Date: 20250514
  Transmission Date: 20250716
  Serious: Yes (Death, Hospitalization, Other)
  Sender: AMGEN
  Company Number: JP-DSJP-DS-2025-118320-

PATIENT
  Age: 88 Year
  Sex: Female

DRUGS (9)
  1. DENOSUMAB [Suspect]
     Active Substance: DENOSUMAB
     Indication: Osteoporosis
     Dosage: 1 ML, ONCE EVERY 6 MO
     Route: 058
     Dates: start: 20151110, end: 20241223
  2. ONEALFA [Concomitant]
     Active Substance: ALFACALCIDOL
     Indication: Lumbar spinal stenosis
     Dosage: 1 UG, QD
     Route: 048
     Dates: start: 20100628
  3. LOXOPROFEN SODIUM [Concomitant]
     Active Substance: LOXOPROFEN SODIUM
     Indication: Lumbar spinal stenosis
     Dosage: 50 MG, QD
     Route: 061
     Dates: start: 20150512
  4. ENALAPRIL MALEATE [Concomitant]
     Active Substance: ENALAPRIL MALEATE
     Indication: Hypertension
     Route: 048
     Dates: start: 20221212
  5. JARDIANCE [Concomitant]
     Active Substance: EMPAGLIFLOZIN
     Indication: Chronic kidney disease
     Dosage: 10 MG, QD
     Route: 048
     Dates: start: 20240415
  6. AZOSEMIDE [Concomitant]
     Active Substance: AZOSEMIDE
     Indication: Hypertension
     Dosage: 30 MG, QD
     Route: 048
     Dates: start: 20240930
  7. LENALIDOMIDE [Concomitant]
     Active Substance: LENALIDOMIDE
     Indication: Product used for unknown indication
     Route: 065
  8. ASPIRIN [Concomitant]
     Active Substance: ASPIRIN
     Indication: Product used for unknown indication
     Dosage: 100 MG, QD
     Route: 048
     Dates: start: 20240722, end: 20250103
  9. ESOMEPRAZOLE [Concomitant]
     Active Substance: ESOMEPRAZOLE
     Indication: Product used for unknown indication
     Dosage: 20 MILLIGRAM, QD
     Route: 065
     Dates: start: 20240722, end: 20250105

REACTIONS (3)
  - Plasma cell myeloma [Not Recovered/Not Resolved]
  - Atypical femur fracture [Fatal]
  - Lumbar spinal stenosis [Unknown]

NARRATIVE: CASE EVENT DATE: 20170609
